FAERS Safety Report 4866588-1 (Version None)
Quarter: 2005Q4

REPORT INFORMATION
  Report Type: 
  Country: None (occurrence: None)
  Receive Date: 20051221
  Receipt Date: 20051114
  Transmission Date: 20060501
  Serious: Yes (Life-Threatening, Hospitalization)
  Sender: FDA-Public Use
  Company Number: 218454

PATIENT
  Age: 47 Year
  Sex: Female

DRUGS (5)
  1. AVASTIN [Suspect]
     Indication: BREAST CANCER METASTATIC
     Dosage: INTRAVENOUS
     Route: 042
     Dates: start: 20050820
  2. ANTINEOPLASTIC AGENT NOS (ANTINEOPLASTIC AGENT NOS) [Concomitant]
  3. ZOMIG [Concomitant]
  4. ZOLPIDEM TARTRATE [Concomitant]
  5. DI-ANTALVIC (ACETAMINOPHEN, PROPOXYPHENE HYDROCHLORIDE) [Concomitant]

REACTIONS (4)
  - ANEURYSM RUPTURED [None]
  - CEREBRAL HAEMORRHAGE [None]
  - MENINGORRHAGIA [None]
  - PHOTOPHOBIA [None]
